FAERS Safety Report 4404185-2 (Version None)
Quarter: 2004Q3

REPORT INFORMATION
  Report Type: 
  Country: None (occurrence: None)
  Receive Date: 20040719
  Receipt Date: 20040712
  Transmission Date: 20050211
  Serious: Yes (Life-Threatening, Hospitalization, Other)
  Sender: FDA-Public Use
  Company Number: HQWYE718628JUN04

PATIENT
  Age: 31 Year
  Sex: Male

DRUGS (12)
  1. CYCLOSPORINE [Suspect]
     Indication: PROPHYLAXIS AGAINST TRANSPLANT REJECTION
     Dates: end: 20040623
  2. FUROSEMIDE [Concomitant]
  3. ALLOPURINOL [Concomitant]
  4. RANITIDINE [Concomitant]
  5. FERROUS SULPHATE (FERROUS SULFATE) [Concomitant]
  6. ERYTHROPOIETIN (ERYTHROPOIETIN) [Concomitant]
  7. CLONIDINE HCL [Concomitant]
  8. METOPROLOL (METOPROLOL) [Concomitant]
  9. ENALAPRIL MALEATE [Concomitant]
  10. AMLODIPINE [Concomitant]
  11. DIHYDRALAZINE SULFATE (DIHYDRALAZINE SULFATE) [Concomitant]
  12. PRAZOSIN HYDROCHLORIDE (PRAZOSIN HYDROCHLORIDE) [Concomitant]

REACTIONS (4)
  - CONDITION AGGRAVATED [None]
  - HYPERTENSION [None]
  - ISCHAEMIC STROKE [None]
  - PARAESTHESIA [None]
